FAERS Safety Report 15124785 (Version 4)
Quarter: 2020Q2

REPORT INFORMATION
  Report Type: Spontaneous
  Country: CA (occurrence: CA)
  Receive Date: 20180710
  Receipt Date: 20200529
  Transmission Date: 20200713
  Serious: Yes (Death)
  Sender: FDA-Public Use
  Company Number: CA-ROCHE-2149336

PATIENT

DRUGS (38)
  1. FILGRASTIM [Suspect]
     Active Substance: FILGRASTIM
     Indication: B-CELL LYMPHOMA REFRACTORY
     Route: 065
  2. CARMUSTINE. [Suspect]
     Active Substance: CARMUSTINE
     Indication: B-CELL LYMPHOMA REFRACTORY
     Route: 065
  3. CYTARABINE. [Suspect]
     Active Substance: CYTARABINE
     Indication: B-CELL LYMPHOMA REFRACTORY
     Route: 042
  4. METHYLPREDNISOLONE. [Suspect]
     Active Substance: METHYLPREDNISOLONE
     Indication: B-CELL LYMPHOMA RECURRENT
  5. VP-16 [Suspect]
     Active Substance: ETOPOSIDE
     Indication: B-CELL LYMPHOMA RECURRENT
  6. RITUXIMAB. [Suspect]
     Active Substance: RITUXIMAB
     Indication: B-CELL LYMPHOMA RECURRENT
     Route: 042
  7. FILGRASTIM [Suspect]
     Active Substance: FILGRASTIM
     Indication: B-CELL LYMPHOMA RECURRENT
  8. CYCLOPHOSPHAMIDE. [Suspect]
     Active Substance: CYCLOPHOSPHAMIDE
     Indication: B-CELL LYMPHOMA RECURRENT
     Route: 065
  9. VP-16 [Suspect]
     Active Substance: ETOPOSIDE
     Indication: B-CELL LYMPHOMA REFRACTORY
     Route: 065
  10. RITUXIMAB. [Suspect]
     Active Substance: RITUXIMAB
     Route: 042
  11. INTERFERON ALFA-2A [Suspect]
     Active Substance: INTERFERON ALFA-2A
     Indication: B-CELL LYMPHOMA REFRACTORY
     Route: 058
  12. DEXAMETHASONE. [Suspect]
     Active Substance: DEXAMETHASONE
     Indication: B-CELL LYMPHOMA REFRACTORY
     Route: 048
  13. DEXAMETHASONE. [Suspect]
     Active Substance: DEXAMETHASONE
     Indication: B-CELL LYMPHOMA RECURRENT
  14. PREDNISONE. [Suspect]
     Active Substance: PREDNISONE
     Indication: B-CELL LYMPHOMA REFRACTORY
     Route: 048
  15. INTERFERON ALFA-2A [Suspect]
     Active Substance: INTERFERON ALFA-2A
     Indication: B-CELL LYMPHOMA RECURRENT
  16. FLUDARABINE [Suspect]
     Active Substance: FLUDARABINE PHOSPHATE
     Indication: B-CELL LYMPHOMA REFRACTORY
     Route: 065
  17. ARA-C [Suspect]
     Active Substance: CYTARABINE
     Indication: B-CELL LYMPHOMA RECURRENT
  18. BICNU [Suspect]
     Active Substance: CARMUSTINE
     Indication: B-CELL LYMPHOMA REFRACTORY
     Route: 065
  19. VINCRISTINE [Suspect]
     Active Substance: VINCRISTINE
     Indication: B-CELL LYMPHOMA REFRACTORY
     Route: 042
  20. CARMUSTINE. [Suspect]
     Active Substance: CARMUSTINE
     Indication: B-CELL LYMPHOMA RECURRENT
  21. CYCLOPHOSPHAMIDE. [Suspect]
     Active Substance: CYCLOPHOSPHAMIDE
     Indication: B-CELL LYMPHOMA REFRACTORY
     Route: 042
  22. DOXORUBICIN [Suspect]
     Active Substance: DOXORUBICIN
     Indication: B-CELL LYMPHOMA RECURRENT
  23. ETOPOSIDE. [Suspect]
     Active Substance: ETOPOSIDE
     Indication: B-CELL LYMPHOMA REFRACTORY
     Route: 065
  24. FLUDARABINE [Suspect]
     Active Substance: FLUDARABINE PHOSPHATE
     Indication: B-CELL LYMPHOMA RECURRENT
  25. PREDNISONE. [Suspect]
     Active Substance: PREDNISONE
     Indication: B-CELL LYMPHOMA RECURRENT
  26. DOXORUBICIN [Suspect]
     Active Substance: DOXORUBICIN
     Indication: B-CELL LYMPHOMA REFRACTORY
     Route: 042
  27. ETOPOSIDE. [Suspect]
     Active Substance: ETOPOSIDE
     Indication: B-CELL LYMPHOMA RECURRENT
     Route: 065
  28. VINCRISTINE [Suspect]
     Active Substance: VINCRISTINE
     Indication: B-CELL LYMPHOMA RECURRENT
  29. ARA-C [Suspect]
     Active Substance: CYTARABINE
     Indication: B-CELL LYMPHOMA REFRACTORY
     Route: 042
  30. FLUDARABINE PHOSPHATE. [Suspect]
     Active Substance: FLUDARABINE PHOSPHATE
     Indication: B-CELL LYMPHOMA
     Route: 065
  31. RITUXIMAB. [Suspect]
     Active Substance: RITUXIMAB
     Indication: B-CELL LYMPHOMA REFRACTORY
     Route: 042
  32. CISPLATIN. [Suspect]
     Active Substance: CISPLATIN
     Indication: B-CELL LYMPHOMA REFRACTORY
     Route: 042
  33. CISPLATIN. [Suspect]
     Active Substance: CISPLATIN
     Indication: B-CELL LYMPHOMA RECURRENT
     Route: 042
  34. CYTARABINE. [Suspect]
     Active Substance: CYTARABINE
     Indication: B-CELL LYMPHOMA RECURRENT
     Route: 042
  35. METHYLPREDNISOLONE. [Suspect]
     Active Substance: METHYLPREDNISOLONE
     Indication: B-CELL LYMPHOMA REFRACTORY
     Route: 042
  36. BICNU [Suspect]
     Active Substance: CARMUSTINE
     Indication: B-CELL LYMPHOMA RECURRENT
  37. METHYLPREDNISOLONE SODIUM SUCCINATE. [Suspect]
     Active Substance: METHYLPREDNISOLONE SODIUM SUCCINATE
     Indication: B-CELL LYMPHOMA RECURRENT
     Route: 042
  38. VINCRISTINE SULFATE. [Suspect]
     Active Substance: VINCRISTINE SULFATE
     Indication: B-CELL LYMPHOMA
     Route: 042

REACTIONS (25)
  - Basal cell carcinoma [Fatal]
  - Cytopenia [Fatal]
  - Infection [Fatal]
  - Respiratory disorder [Fatal]
  - Depression [Fatal]
  - Acute lymphocytic leukaemia [Fatal]
  - Bronchitis [Fatal]
  - Fatigue [Fatal]
  - Fungal infection [Fatal]
  - Haemolytic uraemic syndrome [Fatal]
  - Herpes zoster [Fatal]
  - Hypogammaglobulinaemia [Fatal]
  - Second primary malignancy [Fatal]
  - Atrial fibrillation [Fatal]
  - Myelodysplastic syndrome [Fatal]
  - Pulmonary fibrosis [Fatal]
  - Diffuse large B-cell lymphoma [Fatal]
  - Colorectal adenocarcinoma [Fatal]
  - Acute myeloid leukaemia [Fatal]
  - Non-small cell lung cancer [Fatal]
  - Respiratory tract infection [Fatal]
  - Interstitial lung disease [Fatal]
  - Squamous cell carcinoma [Fatal]
  - Thrombocytopenic purpura [Fatal]
  - Thyroid cancer [Fatal]
